FAERS Safety Report 7864201-2 (Version None)
Quarter: 2011Q4

REPORT INFORMATION
  Report Type: 
  Country: None (occurrence: None)
  Receive Date: 20111028
  Receipt Date: 20111024
  Transmission Date: 20120403
  Serious: Yes (Hospitalization)
  Sender: FDA-Public Use
  Company Number: FR-PFIZER INC-2011225232

PATIENT
  Age: 19 Year
  Sex: Male

DRUGS (15)
  1. IMMUNOGLOBULIN HUMAN NORMAL [Concomitant]
     Dosage: EVERY 3 WEEKS
  2. POLARAMINE [Concomitant]
     Dosage: 1 DF, 2X/DAY
  3. MORPHINE SULFATE [Concomitant]
     Indication: PAIN
     Dosage: UNK
     Dates: start: 20110727
  4. AMBISOME [Suspect]
     Indication: ASPERGILLUS TEST POSITIVE
     Dosage: UNK
     Dates: start: 20110727, end: 20110818
  5. POTASSIUM CHLORIDE [Concomitant]
  6. ZOFRAN [Concomitant]
     Indication: NAUSEA
  7. MORPHINE SULFATE [Concomitant]
     Indication: PAIN
     Dosage: UNK
     Dates: start: 20110727
  8. AMITRIPTYLINE HCL [Concomitant]
     Indication: PAIN
     Dosage: UNK
     Dates: start: 20110809
  9. SPORANOX [Concomitant]
     Dosage: 3 DF PER DAY
     Dates: start: 20060301, end: 20110727
  10. LOVENOX [Concomitant]
     Indication: THROMBOSIS PROPHYLAXIS
  11. VFEND [Suspect]
     Indication: ASPERGILLUS TEST POSITIVE
     Dosage: UNK
     Dates: start: 20110809
  12. ACETAMINOPHEN [Suspect]
     Indication: PAIN
     Dosage: 1 G, 4X/DAY
     Dates: start: 20110701, end: 20110817
  13. BACTRIM [Concomitant]
     Dosage: 800 MG PER DAY
     Dates: start: 20050101
  14. ATARAX [Concomitant]
     Dosage: 25 MG, 2X/DAY
  15. RISPERDAL [Concomitant]
     Indication: ABNORMAL BEHAVIOUR
     Dosage: 2 MG PER DAY
     Dates: start: 20050101

REACTIONS (4)
  - CYTOLYTIC HEPATITIS [None]
  - HEPATOMEGALY [None]
  - ALANINE AMINOTRANSFERASE INCREASED [None]
  - ASPARTATE AMINOTRANSFERASE INCREASED [None]
